FAERS Safety Report 4967570-6 (Version None)
Quarter: 2006Q2

REPORT INFORMATION
  Report Type: 
  Country: None (occurrence: None)
  Receive Date: 20060410
  Receipt Date: 20060329
  Transmission Date: 20061013
  Serious: Yes (Hospitalization)
  Sender: FDA-Public Use
  Company Number: RU-GLAXOSMITHKLINE-B0419583A

PATIENT
  Age: 33 Year
  Sex: Female
  Weight: 60 kg

DRUGS (2)
  1. AUGMENTIN '125' [Suspect]
     Indication: ASTHMA
     Dosage: 1875MG PER DAY
     Route: 048
     Dates: start: 20050901, end: 20050901
  2. DEXAMETHASONE [Concomitant]
     Indication: ASTHMA
     Dosage: 8MG PER DAY
     Dates: start: 20050901, end: 20050901

REACTIONS (4)
  - ALANINE AMINOTRANSFERASE INCREASED [None]
  - ASTHMA [None]
  - CONDITION AGGRAVATED [None]
  - TRANSAMINASES INCREASED [None]
